FAERS Safety Report 9607453 (Version 1)
Quarter: 2013Q4

REPORT INFORMATION
  Report Type: Spontaneous
  Country: US (occurrence: None)
  Receive Date: 20131004
  Receipt Date: 20131004
  Transmission Date: 20140711
  Serious: Yes (Hospitalization, Other)
  Sender: FDA-Public Use
  Company Number: CO-OR-JP-2013-101

PATIENT
  Age: 26 Year
  Sex: Female

DRUGS (3)
  1. PREDNISOLONE (PREDNISOLONE) [Suspect]
     Indication: SYSTEMIC LUPUS ERYTHEMATOSUS
     Dosage: DOSE WAS TAPERED
  2. CYCLOPHOSPHAMIDE [Suspect]
     Route: 042
  3. CYCLOSPORINE [Suspect]
     Indication: INTERSTITIAL LUNG DISEASE

REACTIONS (1)
  - Interstitial lung disease [None]
